FAERS Safety Report 15745540 (Version 1)
Quarter: 2018Q4

REPORT INFORMATION
  Report Type: Spontaneous
  Country: US (occurrence: US)
  Receive Date: 20181220
  Receipt Date: 20181220
  Transmission Date: 20190205
  Serious: No
  Sender: FDA-Public Use
  Company Number: None

PATIENT
  Sex: Male

DRUGS (2)
  1. AMLODIPINE [Suspect]
     Active Substance: AMLODIPINE BESYLATE
  2. VASOTEC [Suspect]
     Active Substance: ENALAPRIL MALEATE

REACTIONS (2)
  - Cough [None]
  - Myalgia [None]
